FAERS Safety Report 8981388 (Version 2)
Quarter: 2013Q4

REPORT INFORMATION
  Report Type: Spontaneous
  Country: US (occurrence: US)
  Receive Date: 20121221
  Receipt Date: 20131230
  Transmission Date: 20140711
  Serious: No
  Sender: FDA-Public Use
  Company Number: US-PFIZER INC-2012320770

PATIENT
  Age: 70 Year
  Sex: Female

DRUGS (1)
  1. MORPHINE [Suspect]
     Dosage: UNK

REACTIONS (3)
  - Nausea [Unknown]
  - Blood pressure decreased [Unknown]
  - Drug hypersensitivity [Unknown]
